FAERS Safety Report 22196700 (Version 1)
Quarter: 2023Q2

REPORT INFORMATION
  Report Type: Other
  Country: None (occurrence: CN)
  Receive Date: 20230411
  Receipt Date: 20230411
  Transmission Date: 20230722
  Serious: Yes (Hospitalization)
  Sender: FDA-Public Use
  Company Number: CN-Appco Pharma LLC-2140142

PATIENT
  Sex: Female
  Weight: 1.03 kg

DRUGS (5)
  1. HYDROXYCHLOROQUINE SULFATE [Suspect]
     Active Substance: HYDROXYCHLOROQUINE SULFATE
     Indication: Product used for unknown indication
     Route: 064
  2. PREDNISONE [Suspect]
     Active Substance: PREDNISONE
     Route: 064
  3. TACROLIMUS [Suspect]
     Active Substance: TACROLIMUS
     Route: 064
  4. LOW-DOSE ASPIRIN [Suspect]
     Active Substance: ASPIRIN
     Route: 064
  5. UNSPECIFIED INGREDIENT [Suspect]
     Active Substance: UNSPECIFIED INGREDIENT
     Route: 064

REACTIONS (3)
  - Foetal exposure during pregnancy [Unknown]
  - Premature baby [Unknown]
  - Low birth weight baby [Unknown]
